FAERS Safety Report 8265119-6 (Version None)
Quarter: 2012Q2

REPORT INFORMATION
  Report Type: 
  Country: None (occurrence: None)
  Receive Date: 20120406
  Receipt Date: 20120402
  Transmission Date: 20120825
  Serious: No
  Sender: FDA-Public Use
  Company Number: US-PFIZER INC-2012083299

PATIENT
  Sex: Male
  Weight: 158.73 kg

DRUGS (3)
  1. NEURONTIN [Suspect]
     Indication: NEUROPATHY PERIPHERAL
     Dosage: 600 MG
     Route: 048
     Dates: end: 20120228
  2. NEURONTIN [Suspect]
  3. MYCOPHENOLATE MOFETIL (CELLCEPT) [Suspect]
     Indication: NEUROPATHY PERIPHERAL
     Dosage: 500 MG, 2X/DAY
     Route: 048
     Dates: end: 20120228

REACTIONS (5)
  - SLEEP DISORDER [None]
  - DYSGRAPHIA [None]
  - INSOMNIA [None]
  - PAIN [None]
  - NEUROPATHY PERIPHERAL [None]
